FAERS Safety Report 10056263 (Version 1)
Quarter: 2014Q2

REPORT INFORMATION
  Report Type: Spontaneous
  Country: US (occurrence: US)
  Receive Date: 20140403
  Receipt Date: 20140403
  Transmission Date: 20141212
  Serious: No
  Sender: FDA-Public Use
  Company Number: US-TEVA-471639USA

PATIENT
  Sex: Male

DRUGS (1)
  1. QVAR [Suspect]
     Route: 055

REACTIONS (3)
  - Drug effect decreased [Unknown]
  - Asthma [Unknown]
  - Nasopharyngitis [Unknown]
